FAERS Safety Report 9838897 (Version 1)
Quarter: 2014Q1

REPORT INFORMATION
  Report Type: Spontaneous
  Country: GB (occurrence: GB)
  Receive Date: 20140123
  Receipt Date: 20140123
  Transmission Date: 20141002
  Serious: Yes (Disabling)
  Sender: FDA-Public Use
  Company Number: GB-ACTAVIS-2014-00411

PATIENT
  Age: 46 Year
  Sex: Female

DRUGS (1)
  1. PARACETAMOL (UNKNOWN) [Suspect]
     Indication: PRODUCT USED FOR UNKNOWN INDICATION
     Dosage: UNK
     Route: 065
     Dates: start: 20140106

REACTIONS (1)
  - Rash morbilliform [Recovered/Resolved]
